FAERS Safety Report 8116187-3 (Version None)
Quarter: 2012Q1

REPORT INFORMATION
  Report Type: 
  Country: None (occurrence: None)
  Receive Date: 20120206
  Receipt Date: 20120124
  Transmission Date: 20120608
  Serious: Yes (Hospitalization)
  Sender: FDA-Public Use
  Company Number: FR-MERCK-1201USA03691

PATIENT
  Age: 85 Year
  Sex: Female

DRUGS (10)
  1. RAMIPRIL [Suspect]
     Route: 048
     Dates: end: 20111128
  2. ESCITALOPRAM OXALATE [Concomitant]
     Route: 065
     Dates: start: 20110701
  3. COZAAR [Suspect]
     Route: 048
     Dates: end: 20111128
  4. AMLODIPINE [Concomitant]
     Route: 065
  5. XALATAN [Concomitant]
     Route: 065
  6. NEBIVOLOL HCL [Suspect]
     Route: 048
     Dates: end: 20111128
  7. ATORVASTATIN [Suspect]
     Route: 048
     Dates: end: 20111128
  8. ROCEPHIN [Concomitant]
     Route: 065
  9. COUMADIN [Concomitant]
     Route: 065
     Dates: start: 20090501
  10. FUROSEMIDE [Concomitant]
     Route: 065

REACTIONS (2)
  - INTERSTITIAL LUNG DISEASE [None]
  - PULMONARY FIBROSIS [None]
